FAERS Safety Report 7332408-9 (Version None)
Quarter: 2011Q1

REPORT INFORMATION
  Report Type: 
  Country: None (occurrence: None)
  Receive Date: 20110304
  Receipt Date: 20110228
  Transmission Date: 20110831
  Serious: Yes (Death, Life-Threatening, Hospitalization)
  Sender: FDA-Public Use
  Company Number: DE-JNJFOC-20110208318

PATIENT
  Age: 89 Year
  Sex: Male

DRUGS (6)
  1. CITALOPRAM [Concomitant]
     Route: 048
     Dates: start: 20100810
  2. RISPERDAL [Suspect]
     Indication: PRODUCT USED FOR UNKNOWN INDICATION
     Route: 048
     Dates: start: 20100616, end: 20100809
  3. ENALAPRIL [Concomitant]
     Route: 048
  4. OMEPRAZOLE [Concomitant]
     Route: 048
  5. FUROSEMID [Concomitant]
     Route: 048
  6. ASPIRIN [Concomitant]
     Route: 048

REACTIONS (3)
  - DELUSION [None]
  - DEATH [None]
  - PNEUMONIA [None]
